FAERS Safety Report 23294672 (Version 1)
Quarter: 2023Q4

REPORT INFORMATION
  Report Type: Spontaneous
  Country: US (occurrence: US)
  Receive Date: 20231213
  Receipt Date: 20231213
  Transmission Date: 20240110
  Serious: No
  Sender: FDA-Public Use
  Company Number: US-SA-SAC20231212000429

PATIENT
  Sex: Female
  Weight: 87.08 kg

DRUGS (3)
  1. DUPIXENT [Suspect]
     Active Substance: DUPILUMAB
     Indication: Dermatitis atopic
     Dosage: 300 MG (1 PEN) UNDER THE SKIN FREQUENCY: EVERY 2 WEEKS
     Route: 058
     Dates: start: 20230516
  2. VITAMIN D2 [Concomitant]
     Active Substance: ERGOCALCIFEROL
  3. ENALAPRIL HIDROCLOROTIAZIDA [Concomitant]

REACTIONS (1)
  - Hypertension [Unknown]
